FAERS Safety Report 7217293-8 (Version None)
Quarter: 2010Q4

REPORT INFORMATION
  Report Type: 
  Country: None (occurrence: None)
  Receive Date: 20101230
  Receipt Date: 20101219
  Transmission Date: 20110411
  Serious: Yes (Other)
  Sender: FDA-Public Use
  Company Number: 2010SP065811

PATIENT
  Sex: Female

DRUGS (2)
  1. PEG-INTRON [Suspect]
     Indication: HEPATITIS
     Dates: start: 20100709
  2. RIBAVARIN [Suspect]
     Indication: HEPATITIS
     Dates: start: 20100709

REACTIONS (5)
  - CATARACT [None]
  - DEPRESSED MOOD [None]
  - DIARRHOEA [None]
  - MACULAR DEGENERATION [None]
  - NAUSEA [None]
